FAERS Safety Report 8791540 (Version 2)
Quarter: 2013Q1

REPORT INFORMATION
  Report Type: Spontaneous
  Country: IT (occurrence: None)
  Receive Date: 20120913
  Receipt Date: 20121119
  Transmission Date: 20140127
  Serious: Yes (Life-Threatening)
  Sender: FDA-Public Use
  Company Number: FK201202635

PATIENT
  Age: 69 Year
  Sex: Male

DRUGS (1)
  1. PACLITAXEL [Suspect]
     Indication: LUNG NEOPLASM MALIGNANT
     Dosage: 80 MG/ MQ BODY SURFACE, INTRAVENOUS (NOT OTHERWISE SPECIFIED)
     Dates: start: 20120821, end: 20120829

REACTIONS (3)
  - Anaphylactic reaction [None]
  - Bronchospasm [None]
  - Injection site erythema [None]
